FAERS Safety Report 17859632 (Version 1)
Quarter: 2020Q2

REPORT INFORMATION
  Report Type: Spontaneous
  Country: US (occurrence: US)
  Receive Date: 20200603
  Receipt Date: 20200603
  Transmission Date: 20200714
  Serious: Yes (Other)
  Sender: FDA-Public Use
  Company Number: None

PATIENT
  Age: 65 Year
  Sex: Female
  Weight: 104.85 kg

DRUGS (4)
  1. PLAIN ACETAMINOPHEN [Concomitant]
  2. TRIAMTERENE/HYDROCHLOROTHIAZIDE 37.5-25 MG. TAB ACTS [Suspect]
     Active Substance: HYDROCHLOROTHIAZIDE\TRIAMTERENE
     Indication: HYPERTENSION
     Dosage: ?
     Route: 048
  3. LOSARTAN POTASSIUM. [Concomitant]
     Active Substance: LOSARTAN POTASSIUM
  4. EXTRA STRENGTH ACETAMINOPHEN [Concomitant]
     Active Substance: ACETAMINOPHEN

REACTIONS (5)
  - Fluid retention [None]
  - Oedema peripheral [None]
  - Product substitution issue [None]
  - Therapeutic response decreased [None]
  - Localised oedema [None]

NARRATIVE: CASE EVENT DATE: 20200518
